FAERS Safety Report 6313481-3 (Version None)
Quarter: 2009Q3

REPORT INFORMATION
  Report Type: 
  Country: None (occurrence: None)
  Receive Date: 20090814
  Receipt Date: 20090814
  Transmission Date: 20100115
  Serious: Yes (Other)
  Sender: FDA-Public Use
  Company Number: None

PATIENT
  Sex: Male
  Weight: 12.7007 kg

DRUGS (2)
  1. LORATADINE [Suspect]
     Indication: ECZEMA
     Dosage: 5ML ONCE DAILY PO
     Route: 048
     Dates: start: 20090810, end: 20090814
  2. LORATADINE [Suspect]
     Indication: PRURITUS
     Dosage: 5ML ONCE DAILY PO
     Route: 048
     Dates: start: 20090810, end: 20090814

REACTIONS (1)
  - CONSTIPATION [None]
